FAERS Safety Report 5082723-7 (Version None)
Quarter: 2006Q3

REPORT INFORMATION
  Report Type: 
  Country: None (occurrence: None)
  Receive Date: 20060816
  Receipt Date: 20060816
  Transmission Date: 20061208
  Serious: Yes (Hospitalization)
  Sender: FDA-Public Use
  Company Number: None

PATIENT
  Age: 59 Year
  Sex: Female
  Weight: 60.3284 kg

DRUGS (5)
  1. OXALIPLATIN [Suspect]
     Indication: PANCREATIC CARCINOMA METASTATIC
     Dosage: 140 MG DAYS 1+15 Q 28 DAY IV DRIP
     Route: 041
     Dates: start: 20060525, end: 20060525
  2. XELODA [Suspect]
     Indication: PANCREATIC CARCINOMA METASTATIC
     Dosage: 1500 MG BID D1-7+15-21 Q 28 D PO
     Route: 048
     Dates: start: 20060525, end: 20060530
  3. ZOFRAN [Concomitant]
  4. METHADON [Concomitant]
  5. DOXEPIM [Concomitant]

REACTIONS (3)
  - HEPATIC ENZYME INCREASED [None]
  - NAUSEA [None]
  - VOMITING [None]
